FAERS Safety Report 7306774-4 (Version None)
Quarter: 2011Q1

REPORT INFORMATION
  Report Type: 
  Country: None (occurrence: None)
  Receive Date: 20110222
  Receipt Date: 20110215
  Transmission Date: 20110831
  Serious: Yes (Hospitalization)
  Sender: FDA-Public Use
  Company Number: US-BRISTOL-MYERS SQUIBB COMPANY-15552094

PATIENT
  Age: 51 Year
  Sex: Male

DRUGS (2)
  1. COUMADIN [Suspect]
     Dates: start: 20101223
  2. LOVENOX [Suspect]
     Indication: THROMBOSIS
     Dosage: INJ
     Dates: start: 20101221, end: 20101224

REACTIONS (3)
  - TINNITUS [None]
  - DEAFNESS UNILATERAL [None]
  - BALANCE DISORDER [None]
